FAERS Safety Report 4351849-5 (Version None)
Quarter: 2004Q2

REPORT INFORMATION
  Report Type: 
  Country: None (occurrence: None)
  Receive Date: 20040429
  Receipt Date: 20040107
  Transmission Date: 20050107
  Serious: No
  Sender: FDA-Public Use
  Company Number: 2004-112133-NL

PATIENT
  Age: 39 Year
  Sex: Female
  Weight: 64 kg

DRUGS (4)
  1. NUVARING [Suspect]
     Indication: MIGRAINE
     Dosage: DF DAILY VAGINAL
     Route: 067
     Dates: start: 20031001
  2. SYNTHROID [Concomitant]
  3. NORTRIPTYLINE HCL [Concomitant]
  4. NORVASC [Concomitant]

REACTIONS (1)
  - METRORRHAGIA [None]
